FAERS Safety Report 7596540-7 (Version None)
Quarter: 2011Q3

REPORT INFORMATION
  Report Type: 
  Country: None (occurrence: None)
  Receive Date: 20110708
  Receipt Date: 20110624
  Transmission Date: 20111222
  Serious: Yes (Other)
  Sender: FDA-Public Use
  Company Number: US-RANBAXY-2011US-45620

PATIENT

DRUGS (1)
  1. PSEUDOEPHEDRINE HYDROCHLORIDE [Suspect]
     Indication: PRODUCT USED FOR UNKNOWN INDICATION
     Dosage: ONE PILL QD
     Route: 065
     Dates: start: 20110308

REACTIONS (3)
  - CONFUSIONAL STATE [None]
  - AMNESIA [None]
  - CEREBROVASCULAR ACCIDENT [None]
